FAERS Safety Report 4917397-6 (Version None)
Quarter: 2006Q1

REPORT INFORMATION
  Report Type: 
  Country: None (occurrence: None)
  Receive Date: 20060221
  Receipt Date: 20060213
  Transmission Date: 20060701
  Serious: Yes (Hospitalization)
  Sender: FDA-Public Use
  Company Number: JP-JPN-A200600572

PATIENT
  Age: 73 Year
  Sex: Female

DRUGS (3)
  1. VALTREX [Suspect]
     Indication: HERPES ZOSTER
     Dosage: 1000MG PER DAY
     Route: 048
     Dates: start: 20060201, end: 20060202
  2. CYANOCOBALAMIN [Concomitant]
     Dosage: 1TAB THREE TIMES PER DAY
     Route: 048
  3. SOLANTAL [Concomitant]
     Dosage: 1TAB THREE TIMES PER DAY
     Route: 048

REACTIONS (1)
  - NERVOUS SYSTEM DISORDER [None]
